FAERS Safety Report 7967234-0 (Version None)
Quarter: 2011Q4

REPORT INFORMATION
  Report Type: 
  Country: None (occurrence: None)
  Receive Date: 20111206
  Receipt Date: 20111117
  Transmission Date: 20120403
  Serious: No
  Sender: FDA-Public Use
  Company Number: ADR-UNK-035

PATIENT
  Age: 280 Day
  Sex: Female
  Weight: 3.42 kg

DRUGS (2)
  1. EFAVIRENZ [Suspect]
     Indication: ACQUIRED IMMUNODEFICIENCY SYNDROME
     Dosage: 600 MG/DAY, ORAL
     Route: 048
     Dates: start: 20081002
  2. TENOFOVIR DISOPROXIL FUMARATE AND EMTRICITABINE ITRUVADA, TVD [Concomitant]

REACTIONS (2)
  - POLYDACTYLY [None]
  - MATERNAL DRUGS AFFECTING FOETUS [None]
